FAERS Safety Report 9688393 (Version 1)
Quarter: 2013Q4

REPORT INFORMATION
  Report Type: Spontaneous
  Country: US (occurrence: None)
  Receive Date: 20131113
  Receipt Date: 20131113
  Transmission Date: 20140711
  Serious: No
  Sender: FDA-Public Use
  Company Number: None

PATIENT
  Age: 61 Year
  Sex: Female
  Weight: 53.07 kg

DRUGS (13)
  1. CRESTOR [Suspect]
     Indication: BLOOD CHOLESTEROL INCREASED
     Dosage: ONE HALF TABLET DAILY BY MOUTH
     Route: 048
     Dates: start: 20090101, end: 20130716
  2. LISINOPRIL [Concomitant]
  3. AMLOPIDINE [Concomitant]
  4. TRAZADONE [Concomitant]
  5. OMEPRAZOLE [Concomitant]
  6. MULTIVITAMIN [Concomitant]
  7. CALCIUM [Concomitant]
  8. PHOSPHATYDALSERINE [Concomitant]
  9. FISH OIL [Concomitant]
  10. ST. JOHN^S WORT [Concomitant]
  11. MAGNESIUM [Concomitant]
  12. STRONTIUM [Concomitant]
  13. VITAMIN K 12 [Concomitant]

REACTIONS (2)
  - Vomiting [None]
  - Intestinal obstruction [None]
